FAERS Safety Report 8923842 (Version 1)
Quarter: 2012Q4

REPORT INFORMATION
  Report Type: 
  Country: US (occurrence: US)
  Receive Date: 20121126
  Receipt Date: 20121126
  Transmission Date: 20130627
  Serious: Yes (Hospitalization)
  Sender: FDA-Public Use
  Company Number: US-BAYER-2012-120620

PATIENT
  Age: 42 Year
  Sex: Male
  Weight: 105 kg

DRUGS (8)
  1. ACETYLSALICYLIC ACID (} 100 MG) [Suspect]
     Indication: CARDIOVASCULAR EVENT PROPHYLAXIS
     Dosage: 325 mg, QD
     Route: 048
     Dates: start: 2009
  2. PERCOCET [Suspect]
     Indication: BACK PAIN
     Dosage: 10/325 mg, PRN
     Route: 048
     Dates: start: 2009
  3. METFORMIN [Concomitant]
     Indication: DIABETES
     Dosage: UNK
     Dates: start: 2011
  4. TAMSULOSIN [Concomitant]
     Indication: BENIGN PROSTATIC HYPERPLASIA
     Dosage: UNK
     Dates: start: 2011
  5. RANITIDINE [Concomitant]
     Dosage: UNK
     Dates: start: 2009
  6. METOPROLOL [Concomitant]
     Indication: HYPERTENSION
     Dosage: UNK
     Dates: start: 2009
  7. PRAVASTATIN [Concomitant]
     Indication: HYPERCHOLESTEROLEMIA
     Dosage: UNK
     Dates: start: 2009
  8. PLACEBO [Suspect]
     Indication: HYPERCHOLESTEROLEMIA
     Dosage: UNK
     Route: 058
     Dates: start: 20121003

REACTIONS (1)
  - Chest pain [None]
